FAERS Safety Report 16802099 (Version 4)
Quarter: 2020Q4

REPORT INFORMATION
  Report Type: Spontaneous
  Country: DE (occurrence: DE)
  Receive Date: 20190912
  Receipt Date: 20201123
  Transmission Date: 20210113
  Serious: Yes (Other)
  Sender: FDA-Public Use
  Company Number: DE-MYLANLABS-2019M1084773

PATIENT
  Age: 57 Year
  Sex: Female
  Weight: 87 kg

DRUGS (8)
  1. VALSARTAN DURA [Suspect]
     Active Substance: VALSARTAN
     Dosage: 160 MILLIGRAM, BID
     Route: 048
     Dates: start: 20180507, end: 2018
  2. VOCADO [Concomitant]
     Active Substance: AMLODIPINE BESYLATE\OLMESARTAN MEDOXOMIL
     Indication: HYPERTENSION
     Dosage: 20MILLIGRAM/5 MILLIGRAM/12.5MILLIGRAM
  3. VALSARTAN DURA [Suspect]
     Active Substance: VALSARTAN
     Indication: HYPERTENSION
     Dosage: 160 MILLIGRAM, AM (ONCE DAILY IN THE MORNING)
     Dates: start: 20140116, end: 20180507
  4. VALSARTAN. [Suspect]
     Active Substance: VALSARTAN
     Indication: HYPERTENSION
     Dosage: UNK
  5. L-THYROXIN                         /00068001/ [Concomitant]
     Active Substance: LEVOTHYROXINE
     Indication: HYPOTHYROIDISM
     Dosage: 75 MILLIGRAM
     Route: 048
     Dates: start: 1995
  6. VALSARTAN HEXAL COMP [Suspect]
     Active Substance: HYDROCHLOROTHIAZIDE\VALSARTAN
     Indication: HYPERTENSION
     Dosage: UNK
  7. VALSARTAN HEXAL [Suspect]
     Active Substance: VALSARTAN
     Indication: HYPERTENSION
     Dosage: UNK
  8. VALSARTAN DURA [Suspect]
     Active Substance: VALSARTAN
     Dosage: 160 MILLIGRAM, AM (ONCE DAILY IN THE MORNING)
     Route: 048
     Dates: end: 20180507

REACTIONS (20)
  - Respiratory distress [Unknown]
  - Fear of disease [Unknown]
  - Panic attack [Unknown]
  - Hyperhidrosis [Unknown]
  - Fluid retention [Unknown]
  - Anxiety [Unknown]
  - Sleep disorder [Unknown]
  - Stress [Unknown]
  - Tinnitus [Unknown]
  - Liver function test increased [Unknown]
  - Tachycardia [Unknown]
  - Fatigue [Unknown]
  - Abdominal pain upper [Unknown]
  - Loss of personal independence in daily activities [Not Recovered/Not Resolved]
  - Nausea [Unknown]
  - Physical disability [Unknown]
  - Dizziness [Unknown]
  - Affective disorder [Unknown]
  - Irritability [Unknown]
  - Mental impairment [Not Recovered/Not Resolved]
